FAERS Safety Report 25856972 (Version 1)
Quarter: 2025Q3

REPORT INFORMATION
  Report Type: Spontaneous
  Country: EU (occurrence: EU)
  Receive Date: 20250929
  Receipt Date: 20250929
  Transmission Date: 20251020
  Serious: Yes (Other)
  Sender: TEVA
  Company Number: None

PATIENT
  Age: 31 Year
  Sex: Male
  Weight: 105 kg

DRUGS (2)
  1. CLINDAMYCIN [Suspect]
     Active Substance: CLINDAMYCIN
     Indication: Product used for unknown indication
     Dosage: 2 TABLETS 3 TIMES A DAY, BRAND NAME NOT SPECIFIED
     Route: 048
     Dates: start: 20250826, end: 20250827
  2. AMOXICILLIN\CLAVULANIC ACID [Suspect]
     Active Substance: AMOXICILLIN\CLAVULANIC ACID
     Indication: Product used for unknown indication
     Dosage: 1 TABLET 3 TIMES A DAY, 500/125MG / BRAND NAME NOT SPECIFIED
     Route: 048
     Dates: start: 20030403, end: 20030405

REACTIONS (2)
  - Urinary retention [Recovered/Resolved]
  - Constipation [Recovered/Resolved]
